FAERS Safety Report 4463245-0 (Version None)
Quarter: 2004Q3

REPORT INFORMATION
  Report Type: 
  Country: None (occurrence: None)
  Receive Date: 20040930
  Receipt Date: 20040831
  Transmission Date: 20050211
  Serious: Yes (Hospitalization, Disabling)
  Sender: FDA-Public Use
  Company Number: BE-GLAXOSMITHKLINE-B0344465A

PATIENT
  Sex: Male

DRUGS (1)
  1. IMITREX [Suspect]
     Indication: HEADACHE
     Route: 058
     Dates: start: 20001119

REACTIONS (5)
  - COMA [None]
  - CONVULSION [None]
  - HEMIPLEGIA [None]
  - ILL-DEFINED DISORDER [None]
  - PSYCHOTIC DISORDER [None]
